FAERS Safety Report 25065684 (Version 3)
Quarter: 2025Q3

REPORT INFORMATION
  Report Type: Report from Study
  Country: US (occurrence: US)
  Receive Date: 20250311
  Receipt Date: 20250919
  Transmission Date: 20251020
  Serious: Yes (Other)
  Sender: ABBVIE
  Company Number: US-ABBVIE-6172141

PATIENT
  Age: 56 Year
  Sex: Male

DRUGS (2)
  1. SKYRIZI [Suspect]
     Active Substance: RISANKIZUMAB-RZAA
     Indication: Psoriasis
     Route: 058
     Dates: start: 20240821
  2. SKYRIZI [Suspect]
     Active Substance: RISANKIZUMAB-RZAA
     Route: 058

REACTIONS (4)
  - Infected cyst [Recovering/Resolving]
  - Knee arthroplasty [Recovered/Resolved]
  - Foot deformity [Recovering/Resolving]
  - Arthritis [Recovering/Resolving]

NARRATIVE: CASE EVENT DATE: 20250201
